FAERS Safety Report 5676756-7 (Version None)
Quarter: 2008Q2

REPORT INFORMATION
  Report Type: 
  Country: None (occurrence: None)
  Receive Date: 20080311
  Receipt Date: 20080205
  Transmission Date: 20081010
  Serious: No
  Sender: FDA-Public Use
  Company Number: 002#1#2008-00046

PATIENT
  Age: 71 Year
  Sex: Male

DRUGS (3)
  1. NEUPRO [Suspect]
     Indication: PARKINSON'S DISEASE
     Dosage: 4MG/24H,1 IN 1 D,TRANSDERMAL
     Route: 062
     Dates: start: 20080101
  2. REQUIP [Concomitant]
  3. SINEMET [Concomitant]

REACTIONS (2)
  - ACCIDENTAL OVERDOSE [None]
  - ANXIETY [None]
